FAERS Safety Report 5345230-X (Version None)
Quarter: 2007Q2

REPORT INFORMATION
  Report Type: 
  Country: None (occurrence: None)
  Receive Date: 20070605
  Receipt Date: 20070523
  Transmission Date: 20071010
  Serious: Yes (Hospitalization)
  Sender: FDA-Public Use
  Company Number: PHEH2007US07882

PATIENT
  Age: 82 Year
  Sex: Female

DRUGS (1)
  1. ZELNORM [Suspect]
     Indication: CONSTIPATION
     Dosage: 6 MG, BID
     Route: 048
     Dates: start: 20030101, end: 20060601

REACTIONS (5)
  - CARDIAC FAILURE CONGESTIVE [None]
  - COLECTOMY [None]
  - COLLAPSE OF LUNG [None]
  - DYSPNOEA [None]
  - GASTROINTESTINAL DISORDER [None]
